FAERS Safety Report 4551843-5 (Version None)
Quarter: 2005Q1

REPORT INFORMATION
  Report Type: 
  Country: None (occurrence: None)
  Receive Date: 20050111
  Receipt Date: 20041229
  Transmission Date: 20050727
  Serious: Yes (Hospitalization)
  Sender: FDA-Public Use
  Company Number: 2004120808

PATIENT
  Age: 77 Year
  Sex: Male
  Weight: 79 kg

DRUGS (3)
  1. VIBRAMYCIN [Suspect]
     Indication: ILL-DEFINED DISORDER
     Dosage: 400 MG (100 MG 4 IN 1 D) ORAL
     Route: 048
     Dates: start: 20040309, end: 20040325
  2. PREDNISOLONE SODIUM SULFOBENZOATE(PREDNISOLONE SODIUM SULFOBENZOATE) [Concomitant]
  3. ACETYLSALICYLIC ACID SRT [Concomitant]

REACTIONS (3)
  - CLOSTRIDIUM COLITIS [None]
  - PNEUMONIA ASPIRATION [None]
  - RESPIRATORY DISTRESS [None]
